FAERS Safety Report 18682830 (Version 1)
Quarter: 2020Q4

REPORT INFORMATION
  Report Type: Spontaneous
  Country: US (occurrence: US)
  Receive Date: 20201230
  Receipt Date: 20201230
  Transmission Date: 20210114
  Serious: Yes (Other)
  Sender: FDA-Public Use
  Company Number: US-ASTRAZENECA-2020SF62324

PATIENT
  Age: 67 Year
  Sex: Female
  Weight: 59 kg

DRUGS (3)
  1. SYMBICORT [Suspect]
     Active Substance: BUDESONIDE\FORMOTEROL FUMARATE DIHYDRATE
     Indication: CHRONIC OBSTRUCTIVE PULMONARY DISEASE
     Dosage: 160/4.5 UG TWO PUFFS TWICE DAILY
     Route: 055
  2. SYMBICORT [Suspect]
     Active Substance: BUDESONIDE\FORMOTEROL FUMARATE DIHYDRATE
     Indication: ASTHMA
     Dosage: 160/4.5 UG TWO PUFFS TWICE DAILY
     Route: 055
  3. SYMBICORT [Suspect]
     Active Substance: BUDESONIDE\FORMOTEROL FUMARATE DIHYDRATE
     Dosage: 80/4.5 UG TWO PUFFS TWICE DAILY
     Route: 055

REACTIONS (6)
  - Drug ineffective [Unknown]
  - Inappropriate schedule of product administration [Unknown]
  - Barrett^s oesophagus [Unknown]
  - Wrong technique in product usage process [Unknown]
  - Intentional device misuse [Unknown]
  - Product packaging quantity issue [Unknown]

NARRATIVE: CASE EVENT DATE: 2018
